FAERS Safety Report 13627384 (Version 2)
Quarter: 2017Q2

REPORT INFORMATION
  Report Type: Report from Study
  Country: CA (occurrence: CA)
  Receive Date: 20170608
  Receipt Date: 20170622
  Transmission Date: 20170830
  Serious: Yes (Other)
  Sender: FDA-Public Use
  Company Number: CA-AMGEN-CANSL2017069993

PATIENT
  Age: 82 Year
  Sex: Female

DRUGS (7)
  1. ONBREZ [Concomitant]
     Active Substance: INDACATEROL
  2. VITAMIN D [Concomitant]
     Active Substance: CHOLECALCIFEROL
     Dosage: 1000 IU, UNK
  3. LOSEC [Concomitant]
     Active Substance: OMEPRAZOLE
     Dosage: 20 UNK, QD
  4. PROPRANOLOL [Concomitant]
     Active Substance: PROPRANOLOL HYDROCHLORIDE
     Dosage: 10 UNK, UNK
  5. PROLIA [Suspect]
     Active Substance: DENOSUMAB
     Indication: OSTEOPOROSIS
     Dosage: UNK, Q6MO
     Route: 065
     Dates: start: 20170101
  6. INDERAL [Concomitant]
     Active Substance: PROPRANOLOL HYDROCHLORIDE
     Indication: ARRHYTHMIA
     Dosage: 60 MG, UNK
  7. CALCIUM [Concomitant]
     Active Substance: CALCIUM

REACTIONS (6)
  - Tooth fracture [Unknown]
  - Back pain [Unknown]
  - Impaired healing [Unknown]
  - Swelling face [Not Recovered/Not Resolved]
  - Tooth disorder [Unknown]
  - Procedural pain [Unknown]

NARRATIVE: CASE EVENT DATE: 20170511
